FAERS Safety Report 6933334-7 (Version None)
Quarter: 2010Q3

REPORT INFORMATION
  Report Type: 
  Country: None (occurrence: None)
  Receive Date: 20100820
  Receipt Date: 20100818
  Transmission Date: 20110219
  Serious: Yes (Hospitalization)
  Sender: FDA-Public Use
  Company Number: BY-BAYER-201036174GPV

PATIENT
  Age: 44 Year
  Sex: Female
  Weight: 147 kg

DRUGS (1)
  1. MIRENA [Suspect]
     Indication: CONTRACEPTION
     Route: 015
     Dates: start: 20100201, end: 20100714

REACTIONS (2)
  - OVARIAN MASS [None]
  - UTERINE MASS [None]
